FAERS Safety Report 21410491 (Version 2)
Quarter: 2022Q4

REPORT INFORMATION
  Report Type: Report from Study
  Country: CN (occurrence: None)
  Receive Date: 20221005
  Receipt Date: 20221017
  Transmission Date: 20230113
  Serious: Yes (Hospitalization)
  Sender: FDA-Public Use
  Company Number: CN-ROCHE-3190221

PATIENT
  Age: 47 Year
  Sex: Male
  Weight: 55 kg

DRUGS (3)
  1. ATEZOLIZUMAB [Suspect]
     Active Substance: ATEZOLIZUMAB
     Indication: Thymic carcinoma
     Route: 041
     Dates: start: 20220810, end: 20220831
  2. ATEZOLIZUMAB [Suspect]
     Active Substance: ATEZOLIZUMAB
     Dosage: EVERY 3 WEEKS
     Route: 041
     Dates: start: 20220907
  3. HUANG LIAN SHANG QING [Concomitant]

REACTIONS (1)
  - Anaemia [Recovered/Resolved]

NARRATIVE: CASE EVENT DATE: 20220830
